FAERS Safety Report 12609663 (Version 1)
Quarter: 2016Q3

REPORT INFORMATION
  Report Type: Spontaneous
  Country: GB (occurrence: GB)
  Receive Date: 20160801
  Receipt Date: 20160801
  Transmission Date: 20161109
  Serious: Yes (Disabling, Other)
  Sender: FDA-Public Use
  Company Number: GB-ACCORD-042824

PATIENT
  Age: 75 Year
  Sex: Male
  Weight: 76.2 kg

DRUGS (6)
  1. ASPIRIN. [Concomitant]
     Active Substance: ASPIRIN
  2. GLYCERYL TRINITRATE [Concomitant]
     Active Substance: NITROGLYCERIN
  3. RAMIPRIL. [Concomitant]
     Active Substance: RAMIPRIL
  4. AMLODIPINE [Suspect]
     Active Substance: AMLODIPINE BESYLATE
     Indication: ANGINA PECTORIS
     Route: 048
     Dates: start: 20091210, end: 20160701
  5. ATENOLOL/ATENOLOL HYDROCHLORIDE [Concomitant]
  6. PRAVASTATIN/PRAVASTATIN SODIUM [Concomitant]

REACTIONS (3)
  - Joint swelling [Recovered/Resolved]
  - Parkinson^s disease [Not Recovered/Not Resolved]
  - Urinary incontinence [Unknown]

NARRATIVE: CASE EVENT DATE: 20150402
